FAERS Safety Report 14285486 (Version 2)
Quarter: 2018Q1

REPORT INFORMATION
  Report Type: Spontaneous
  Country: US (occurrence: US)
  Receive Date: 20171214
  Receipt Date: 20180110
  Transmission Date: 20180509
  Serious: No
  Sender: FDA-Public Use
  Company Number: US-PFIZER INC-2017532595

PATIENT
  Age: 69 Year
  Sex: Male

DRUGS (2)
  1. ADVIL [Suspect]
     Active Substance: IBUPROFEN
     Indication: MYALGIA
     Dosage: UNK
     Dates: end: 20171210
  2. ADVIL [Suspect]
     Active Substance: IBUPROFEN
     Dosage: 200 MG, UNK (2Q-200MG)

REACTIONS (8)
  - Dysgeusia [Recovered/Resolved]
  - Poor quality drug administered [Unknown]
  - Foreign body in respiratory tract [Recovered/Resolved]
  - Throat irritation [Recovered/Resolved]
  - Product taste abnormal [Recovered/Resolved]
  - Product physical issue [Unknown]
  - Accidental exposure to product [Unknown]
  - Vomiting [Recovered/Resolved]

NARRATIVE: CASE EVENT DATE: 20171209
